FAERS Safety Report 6674731-7 (Version None)
Quarter: 2010Q1

REPORT INFORMATION
  Report Type: 
  Country: None (occurrence: None)
  Receive Date: 20100329
  Receipt Date: 20090323
  Transmission Date: 20100710
  Serious: Yes (Other)
  Sender: FDA-Public Use
  Company Number: 2009191880

PATIENT
  Age: 59 Year
  Sex: Female
  Weight: 100 kg

DRUGS (18)
  1. GEODON (ZIPRASIDONE HCL) UNKNOWN [Suspect]
     Indication: BIPOLAR DISORDER
     Dosage: 80 MG, 1X/DAY ORAL
     Route: 048
     Dates: start: 20090321, end: 20090321
  2. GEODON (ZIPRASIDONE HCL) UNKNOWN [Suspect]
     Indication: DEPRESSION
     Dosage: 80 MG, 1X/DAY ORAL
     Route: 048
     Dates: start: 20090321, end: 20090321
  3. NEXIUM [Concomitant]
  4. PLAVIX [Concomitant]
  5. FLEXERIL [Concomitant]
  6. XANAX [Concomitant]
  7. ATENOLOL [Concomitant]
  8. CELEBREX [Concomitant]
  9. HYDROCHLOROTHIAZIDE [Concomitant]
  10. LIPITOR [Concomitant]
  11. LEVOTHYROXINE SODIUM [Concomitant]
  12. XYZAL (LEVOCETRIZINE DIHYDROCHLORIDE) [Concomitant]
  13. LIPITOR (ATIORVASTATIN) [Concomitant]
  14. LEVOTHYROXINE SODIUM [Concomitant]
  15. BENAZEPRIL (BENAZEPRUIL) [Concomitant]
  16. VITAMIN D (ERGOCALCIFERON) [Concomitant]
  17. LORTAB [Concomitant]
  18. AMIEN (ZOLPIDEM TARTRATE) [Concomitant]

REACTIONS (1)
  - THROAT TIGHTNESS [None]
